FAERS Safety Report 10844320 (Version 1)
Quarter: 2015Q1

REPORT INFORMATION
  Report Type: Spontaneous
  Country: IT (occurrence: IT)
  Receive Date: 20150220
  Receipt Date: 20150220
  Transmission Date: 20150721
  Serious: Yes (Hospitalization)
  Sender: FDA-Public Use
  Company Number: IT-NOVOPROD-438272

PATIENT
  Age: 90 Year
  Sex: Female

DRUGS (15)
  1. SINVACOR [Concomitant]
     Active Substance: SIMVASTATIN
     Route: 048
  2. PLAVIX [Concomitant]
     Active Substance: CLOPIDOGREL BISULFATE
     Route: 048
  3. NEBIVOLOLO [Concomitant]
     Route: 048
  4. LANSOPRAZOLO [Concomitant]
     Active Substance: LANSOPRAZOLE
     Route: 048
  5. LASIX [Concomitant]
     Active Substance: FUROSEMIDE
     Route: 048
  6. ENTACT [Concomitant]
     Active Substance: ESCITALOPRAM OXALATE
     Route: 048
  7. CARDIOASPIRIN [Concomitant]
     Active Substance: ASPIRIN
     Route: 048
  8. TAPAZOLE [Concomitant]
     Active Substance: METHIMAZOLE
     Route: 048
  9. FOLINA                             /00024201/ [Concomitant]
     Active Substance: FOLIC ACID
     Route: 048
  10. PLAUNAC [Concomitant]
     Active Substance: OLMESARTAN MEDOXOMIL
     Route: 048
  11. NOVORAPID [Suspect]
     Active Substance: INSULIN ASPART
     Indication: DIABETES MELLITUS
     Dosage: 30 IU, QD
     Route: 058
     Dates: start: 20140101
  12. ZYLORIC [Concomitant]
     Active Substance: ALLOPURINOL
     Route: 048
  13. LEVEMIR [Suspect]
     Active Substance: INSULIN DETEMIR
     Indication: DIABETES MELLITUS
     Dosage: 10 IU, QD
     Route: 058
     Dates: start: 20140101
  14. DOBETIN                            /00056201/ [Concomitant]
     Active Substance: CYANOCOBALAMIN
     Route: 058
  15. EPREX [Concomitant]
     Active Substance: ERYTHROPOIETIN
     Route: 058

REACTIONS (2)
  - Presyncope [Unknown]
  - Hypoglycaemia [Unknown]

NARRATIVE: CASE EVENT DATE: 20141223
